FAERS Safety Report 9556958 (Version 2)
Quarter: 2013Q4

REPORT INFORMATION
  Report Type: Spontaneous
  Country: US (occurrence: US)
  Receive Date: 20130926
  Receipt Date: 20131030
  Transmission Date: 20140711
  Serious: Yes (Life-Threatening, Hospitalization, Disabling, Other)
  Sender: FDA-Public Use
  Company Number: US-BAYER-2013-116248

PATIENT
  Age: 32 Year
  Sex: Female

DRUGS (10)
  1. YAZ [Suspect]
     Dosage: UNK
  2. YASMIN [Suspect]
     Indication: CONTRACEPTION
     Dosage: UNK
  3. OCELLA [Suspect]
     Dosage: UNK
  4. GIANVI [Suspect]
     Dosage: UNK
  5. PREVACID [Concomitant]
     Dosage: UNK
     Dates: start: 20091029
  6. ZANAFLEX [Concomitant]
     Dosage: UNK
     Dates: start: 20091029
  7. TOPAMAX [Concomitant]
     Dosage: UNK
     Dates: start: 20091029
  8. IBUPROFEN [IBUPROFEN] [Concomitant]
     Dosage: UNK
     Dates: start: 20091029
  9. AMERGE [Concomitant]
     Dosage: UNK
     Dates: start: 20091029
  10. LORATADINE [Concomitant]

REACTIONS (9)
  - Pulmonary embolism [None]
  - Cholelithiasis [None]
  - Injury [None]
  - Pain [None]
  - General physical health deterioration [None]
  - Emotional distress [None]
  - Pain [None]
  - Anxiety [None]
  - Anhedonia [None]
